FAERS Safety Report 9234674 (Version 1)
Quarter: 2013Q2

REPORT INFORMATION
  Report Type: Spontaneous
  Country: FR (occurrence: FR)
  Receive Date: 20130416
  Receipt Date: 20130416
  Transmission Date: 20140414
  Serious: Yes (Hospitalization, Other)
  Sender: FDA-Public Use
  Company Number: PHHY2013FR034750

PATIENT
  Age: 28 Year
  Sex: Female

DRUGS (7)
  1. METHOTREXATE [Suspect]
     Indication: B-CELL LYMPHOMA
     Dosage: 3 G PER M2
  2. CIPROFLOXACIN [Interacting]
     Indication: B-CELL LYMPHOMA
     Dosage: 500 MG, BID
  3. SODIUM BICARBONATE [Interacting]
     Dosage: 70 MMOL, UNK
  4. IFOSFAMIDE [Concomitant]
     Indication: B-CELL LYMPHOMA
  5. ETOPOSIDE [Concomitant]
     Indication: B-CELL LYMPHOMA
  6. CYTARABINE [Concomitant]
     Indication: B-CELL LYMPHOMA
  7. VALACICLOVIR [Concomitant]
     Indication: HERPES SIMPLEX
     Dosage: 500 MG, BID

REACTIONS (14)
  - Toxicity to various agents [Unknown]
  - C-reactive protein increased [Unknown]
  - Mucosal inflammation [Unknown]
  - Skin necrosis [Unknown]
  - Skin lesion [Unknown]
  - Chills [Unknown]
  - Blood creatinine increased [Recovered/Resolved]
  - Trichosporon infection [Unknown]
  - Pancytopenia [Unknown]
  - Diarrhoea [Unknown]
  - Pyrexia [Unknown]
  - Bone marrow failure [Unknown]
  - Drug interaction [Unknown]
  - Drug level increased [Unknown]
